FAERS Safety Report 10655307 (Version 1)
Quarter: 2014Q4

REPORT INFORMATION
  Report Type: Spontaneous
  Country: JP (occurrence: JP)
  Receive Date: 20141216
  Receipt Date: 20141216
  Transmission Date: 20150529
  Serious: Yes (Hospitalization)
  Sender: FDA-Public Use
  Company Number: PHHY2014JP159094

PATIENT
  Sex: Female

DRUGS (6)
  1. DICLOFENAC [Suspect]
     Active Substance: DICLOFENAC
     Indication: RHEUMATOID ARTHRITIS
     Dosage: UNK
     Route: 048
     Dates: start: 20140311
  2. LEVOFLOXACIN. [Concomitant]
     Active Substance: LEVOFLOXACIN
     Indication: PRODUCT USED FOR UNKNOWN INDICATION
     Route: 065
  3. LOXOPROFEN [Suspect]
     Active Substance: LOXOPROFEN
     Indication: PYREXIA
     Dosage: UNK
     Route: 065
     Dates: start: 20140422
  4. BUCILLAMINE [Suspect]
     Active Substance: BUCILLAMINE
     Indication: RHEUMATOID ARTHRITIS
     Dosage: UNK
     Route: 048
     Dates: start: 201403
  5. ALDIOXA [Concomitant]
     Active Substance: ALDIOXA
     Indication: PRODUCT USED FOR UNKNOWN INDICATION
     Route: 065
  6. IRSOGLADINE [Suspect]
     Active Substance: IRSOGLADINE
     Indication: RHEUMATOID ARTHRITIS
     Dosage: UNK
     Route: 048
     Dates: start: 201403

REACTIONS (9)
  - Blister [Recovered/Resolved]
  - Haematochezia [Recovered/Resolved]
  - Rash pustular [Recovered/Resolved]
  - Feeling hot [Recovered/Resolved]
  - Diarrhoea [Recovered/Resolved]
  - Gastric ulcer haemorrhage [Recovered/Resolved]
  - Pyrexia [Recovered/Resolved]
  - Erythema [Recovered/Resolved]
  - Rash [Recovered/Resolved]

NARRATIVE: CASE EVENT DATE: 20140428
